FAERS Safety Report 15581025 (Version 4)
Quarter: 2018Q4

REPORT INFORMATION
  Report Type: Spontaneous
  Country: CH (occurrence: CH)
  Receive Date: 20181105
  Receipt Date: 20181216
  Transmission Date: 20190205
  Serious: Yes (Life-Threatening, Hospitalization, Other)
  Sender: FDA-Public Use
  Company Number: CH-AMGEN-CHESP2018154365

PATIENT
  Age: 42 Year
  Sex: Female
  Weight: 125 kg

DRUGS (8)
  1. ASPIRIN CARDIO [Concomitant]
     Active Substance: ASPIRIN
     Indication: THROMBOCYTOSIS
     Dosage: 100 MG, 1X/DAY
     Route: 048
     Dates: start: 20140603
  2. VITARUBIN [Concomitant]
     Active Substance: CYANOCOBALAMIN
     Indication: ANAEMIA VITAMIN B12 DEFICIENCY
     Dosage: 500 MG, UNK (ALL 3 MONTHS)
     Route: 042
     Dates: start: 20140415
  3. METHOTREXATE. [Concomitant]
     Active Substance: METHOTREXATE
     Indication: RHEUMATOID ARTHRITIS
     Dosage: 25 MG, WEEKLY (1X WEEK)
     Route: 058
     Dates: start: 20140401
  4. DROSSAFOL COMP [Concomitant]
     Dosage: 5 MG, WEEKLY (2 TABL 1/WEEK)
     Route: 048
     Dates: start: 20140401
  5. SPIRICORT [Concomitant]
     Active Substance: PREDNISOLONE
     Indication: RHEUMATOID ARTHRITIS
     Dosage: 5 MG, 1X/DAY
     Route: 048
     Dates: start: 20140123
  6. VITAMIN D3 [Concomitant]
     Active Substance: CHOLECALCIFEROL
     Indication: OSTEOPOROSIS
     Dosage: 4500 IU, UNK (8 TBL. DAILY)
     Route: 048
     Dates: start: 20140513
  7. FOSAVANCE [Concomitant]
     Active Substance: ALENDRONATE SODIUM\CHOLECALCIFEROL
     Indication: OSTEOPOROSIS
     Dosage: UNK, WEEKLY (70/5600, 1X WEEKLY)
     Route: 048
     Dates: start: 20140603
  8. ENBREL [Suspect]
     Active Substance: ETANERCEPT
     Indication: RHEUMATOID ARTHRITIS
     Dosage: 50 MG, WEEKLY
     Route: 058
     Dates: start: 20181025

REACTIONS (1)
  - Pulmonary embolism [Recovered/Resolved]

NARRATIVE: CASE EVENT DATE: 20181026
